FAERS Safety Report 22801160 (Version 4)
Quarter: 2023Q4

REPORT INFORMATION
  Report Type: Report from Study
  Country: KR (occurrence: KR)
  Receive Date: 20230809
  Receipt Date: 20231220
  Transmission Date: 20240110
  Serious: Yes (Hospitalization)
  Sender: FDA-Public Use
  Company Number: KR-002147023-NVSC2023KR067596

PATIENT
  Sex: Male
  Weight: 6.4 kg

DRUGS (1)
  1. ZOLGENSMA [Suspect]
     Active Substance: ONASEMNOGENE ABEPARVOVEC-XIOI
     Indication: Spinal muscular atrophy
     Dosage: 30.3 ML, ONCE/SINGLE (CALCULATED BASED ON WEIGHT)
     Route: 042
     Dates: start: 20230315, end: 20230315

REACTIONS (13)
  - Pneumonia [Recovered/Resolved]
  - Pneumonia [Recovered/Resolved]
  - Nasopharyngitis [Recovered/Resolved]
  - Cardiac function test abnormal [Recovered/Resolved]
  - Cardiac function test abnormal [Recovered/Resolved]
  - Cardiac function test abnormal [Recovered/Resolved]
  - Malnutrition [Recovered/Resolved]
  - Poor feeding infant [Unknown]
  - Appetite disorder [Recovered/Resolved]
  - Productive cough [Recovered/Resolved]
  - Dysphagia [Recovered/Resolved]
  - Liver function test increased [Recovered/Resolved]
  - Platelet count decreased [Recovered/Resolved]

NARRATIVE: CASE EVENT DATE: 20230101
